FAERS Safety Report 5122354-3 (Version None)
Quarter: 2006Q4

REPORT INFORMATION
  Report Type: 
  Country: None (occurrence: None)
  Receive Date: 20061004
  Receipt Date: 20060926
  Transmission Date: 20070319
  Serious: Yes (Other)
  Sender: FDA-Public Use
  Company Number: HQWYE816004OCT05

PATIENT
  Age: 65 Year
  Sex: Male

DRUGS (2)
  1. RAPAMUNE [Suspect]
     Indication: IMMUNOSUPPRESSANT DRUG THERAPY
     Dosage: UNSPECIFIED
     Dates: end: 20050101
  2. PREDNISONE TAB [Concomitant]

REACTIONS (6)
  - ANAEMIA [None]
  - ARTERIOVENOUS MALFORMATION [None]
  - GASTRIC ULCER [None]
  - IMPAIRED HEALING [None]
  - OCCULT BLOOD POSITIVE [None]
  - PEPTIC ULCER [None]
